FAERS Safety Report 9644530 (Version 1)
Quarter: 2013Q4

REPORT INFORMATION
  Report Type: Spontaneous
  Country: CA (occurrence: CA)
  Receive Date: 20131025
  Receipt Date: 20131025
  Transmission Date: 20140711
  Serious: Yes (Death)
  Sender: FDA-Public Use
  Company Number: CA-AMGEN-CANSP2013074473

PATIENT
  Age: 60 Year
  Sex: Female

DRUGS (1)
  1. NEUPOGEN [Suspect]
     Indication: PRODUCT USED FOR UNKNOWN INDICATION
     Dosage: 1ML/300MCG
     Route: 065
     Dates: end: 20130822

REACTIONS (1)
  - Death [Fatal]
